FAERS Safety Report 10164198 (Version 1)
Quarter: 2014Q2

REPORT INFORMATION
  Report Type: Spontaneous
  Country: US (occurrence: US)
  Receive Date: 20140510
  Receipt Date: 20140510
  Transmission Date: 20141212
  Serious: No
  Sender: FDA-Public Use
  Company Number: US-BRISTOL-MYERS SQUIBB COMPANY-19981935

PATIENT
  Age: 54 Year
  Sex: Female

DRUGS (2)
  1. BYETTA [Suspect]
     Indication: TYPE 2 DIABETES MELLITUS
     Dosage: 5MCG ONCE DAILY FOR THE FIRST WEEK THEN TWO TIMES DAILY
     Dates: start: 201311, end: 2013
  2. METFORMIN [Concomitant]

REACTIONS (1)
  - Paranoia [Unknown]
